FAERS Safety Report 15694791 (Version 1)
Quarter: 2018Q4

REPORT INFORMATION
  Report Type: Spontaneous
  Country: US (occurrence: US)
  Receive Date: 20181206
  Receipt Date: 20181206
  Transmission Date: 20190205
  Serious: No
  Sender: FDA-Public Use
  Company Number: US-ENDO PHARMACEUTICALS INC-2018-040650

PATIENT
  Age: 53 Year
  Sex: Male
  Weight: 87.53 kg

DRUGS (3)
  1. METFORMIN [Concomitant]
     Active Substance: METFORMIN HYDROCHLORIDE
     Indication: PRODUCT USED FOR UNKNOWN INDICATION
  2. XIAFLEX [Suspect]
     Active Substance: COLLAGENASE CLOSTRIDIUM HISTOLYTICUM
     Indication: PEYRONIE^S DISEASE
     Dosage: UNK MG, CYCLE 1, INJECTION 2
     Route: 026
     Dates: start: 2018
  3. XIAFLEX [Suspect]
     Active Substance: COLLAGENASE CLOSTRIDIUM HISTOLYTICUM
     Dosage: UNK MG, CYCLE 1, INJECTION 1
     Route: 026
     Dates: start: 2018

REACTIONS (5)
  - Swelling [Recovered/Resolved]
  - Constipation [Recovered/Resolved]
  - Pain [Recovered/Resolved]
  - Rectal tenesmus [Recovered/Resolved]
  - Contusion [Recovered/Resolved]

NARRATIVE: CASE EVENT DATE: 20180724
